FAERS Safety Report 10181606 (Version 1)
Quarter: 2014Q2

REPORT INFORMATION
  Report Type: Spontaneous
  Country: GB (occurrence: GB)
  Receive Date: 20140519
  Receipt Date: 20140519
  Transmission Date: 20141212
  Serious: Yes (Other)
  Sender: FDA-Public Use
  Company Number: GB-PFIZER INC-2014135522

PATIENT
  Age: 68 Year
  Sex: Male
  Weight: 81.18 kg

DRUGS (6)
  1. SERTRALINE HCL [Suspect]
     Indication: DEPRESSION
     Dosage: 100 MG, 1X/DAY
     Route: 048
     Dates: start: 20140411
  2. ASPIRIN [Concomitant]
     Dosage: 75 MG, 1X/DAY
  3. ATORVASTATIN [Concomitant]
     Dosage: 10 MG, 1X/DAY
  4. DOMPERIDONE MALEATE [Concomitant]
     Dosage: 10 MG, 3X/DAY
  5. LANSOPRAZOLE [Concomitant]
     Dosage: 30 MG, 1X/DAY
  6. PROCORALAN [Concomitant]
     Dosage: 5 MG, 2X/DAY

REACTIONS (6)
  - Feeling abnormal [Not Recovered/Not Resolved]
  - Dysgeusia [Not Recovered/Not Resolved]
  - Depressed mood [Not Recovered/Not Resolved]
  - Drug ineffective [Not Recovered/Not Resolved]
  - Head discomfort [Not Recovered/Not Resolved]
  - Product substitution issue [Unknown]
